FAERS Safety Report 24855351 (Version 4)
Quarter: 2025Q1

REPORT INFORMATION
  Report Type: Spontaneous
  Country: GB (occurrence: GB)
  Receive Date: 20250117
  Receipt Date: 20250310
  Transmission Date: 20250409
  Serious: Yes (Death, Hospitalization, Other)
  Sender: DAIICHI
  Company Number: GB-DSJP-DS-2025-119993-GB

PATIENT
  Age: 65 Year
  Sex: Female

DRUGS (2)
  1. ENHERTU [Suspect]
     Active Substance: FAM-TRASTUZUMAB DERUXTECAN-NXKI
     Indication: Breast cancer
     Dosage: UNK UNK, ONCE EVERY 3 WK
     Route: 065
     Dates: start: 202408, end: 202408
  2. ENHERTU [Suspect]
     Active Substance: FAM-TRASTUZUMAB DERUXTECAN-NXKI
     Dosage: UNK UNK, ONCE EVERY 3 WK
     Route: 065

REACTIONS (13)
  - Pneumonia [Fatal]
  - Coma [Unknown]
  - Bedridden [Recovered/Resolved]
  - Depressed mood [Unknown]
  - Muscular weakness [Unknown]
  - Fall [Unknown]
  - Dysarthria [Unknown]
  - Tooth loss [Unknown]
  - Dyspnoea [Unknown]
  - Alopecia [Unknown]
  - Influenza [Unknown]
  - Nausea [Unknown]
  - Product dose omission issue [Unknown]

NARRATIVE: CASE EVENT DATE: 20240801
